FAERS Safety Report 6223583-8 (Version None)
Quarter: 2009Q2

REPORT INFORMATION
  Report Type: 
  Country: None (occurrence: None)
  Receive Date: 20090610
  Receipt Date: 20090528
  Transmission Date: 20091009
  Serious: Yes (Hospitalization)
  Sender: FDA-Public Use
  Company Number: 8047284

PATIENT
  Age: 65 Year
  Sex: Female

DRUGS (7)
  1. KEPPRA [Suspect]
     Indication: SIMPLE PARTIAL SEIZURES
     Dosage: PO
     Route: 048
     Dates: start: 20090107, end: 20090120
  2. URBANYL [Suspect]
     Dosage: 5 MG 3/D
     Dates: start: 20090107
  3. URBANYL [Suspect]
     Dosage: 5 MG 2/D
  4. URBANYL [Suspect]
     Dosage: 5 MG 1/D
  5. SIMVASTATIN [Concomitant]
  6. COAPROVEL [Concomitant]
  7. EFFEXOR [Concomitant]

REACTIONS (3)
  - METASTATIC MALIGNANT MELANOMA [None]
  - NEURALGIA [None]
  - NEUTROPENIA [None]
